FAERS Safety Report 22614393 (Version 1)
Quarter: 2023Q2

REPORT INFORMATION
  Report Type: Report from Study
  Country: US (occurrence: US)
  Receive Date: 20230619
  Receipt Date: 20230619
  Transmission Date: 20230721
  Serious: Yes (Other)
  Sender: FDA-Public Use
  Company Number: US-ABBVIE-5294577

PATIENT
  Sex: Female

DRUGS (1)
  1. HUMIRA [Suspect]
     Active Substance: ADALIMUMAB
     Indication: Rheumatoid arthritis
     Dosage: STRENGTH 40 MG, CITRATE FREE
     Route: 058
     Dates: start: 20230414, end: 20230415

REACTIONS (2)
  - Cholecystectomy [Recovering/Resolving]
  - Tooth infection [Recovering/Resolving]

NARRATIVE: CASE EVENT DATE: 20230101
